FAERS Safety Report 11411888 (Version 2)
Quarter: 2015Q3

REPORT INFORMATION
  Report Type: Spontaneous
  Country: US (occurrence: US)
  Receive Date: 20150821
  Receipt Date: 20150903
  Transmission Date: 20151125
  Serious: No
  Sender: FDA-Public Use
  Company Number: US-ELI_LILLY_AND_COMPANY-US201107008189

PATIENT
  Age: 62 Year
  Sex: Female
  Weight: 135.15 kg

DRUGS (3)
  1. HUMAN INSULIN [Suspect]
     Active Substance: INSULIN HUMAN
     Indication: TYPE 2 DIABETES MELLITUS
     Dosage: UNK, UNKNOWN
     Route: 065
  2. HUMALOG [Suspect]
     Active Substance: INSULIN LISPRO
     Indication: TYPE 2 DIABETES MELLITUS
     Dosage: UNK, UNKNOWN
     Route: 065
  3. LANTUS [Concomitant]
     Active Substance: INSULIN GLARGINE
     Indication: TYPE 2 DIABETES MELLITUS
     Dosage: UNK, BID
     Dates: start: 2004

REACTIONS (8)
  - Blood glucose fluctuation [Unknown]
  - Weight loss poor [Unknown]
  - Fall [Unknown]
  - Cataract operation [Recovered/Resolved]
  - Visual acuity reduced [Recovered/Resolved]
  - Hypoacusis [Unknown]
  - Gait disturbance [Unknown]
  - Weight increased [Unknown]

NARRATIVE: CASE EVENT DATE: 20110516
